FAERS Safety Report 16053569 (Version 4)
Quarter: 2019Q3

REPORT INFORMATION
  Report Type: Spontaneous
  Country: JP (occurrence: JP)
  Receive Date: 20190308
  Receipt Date: 20190712
  Transmission Date: 20191004
  Serious: Yes (Death, Hospitalization, Other)
  Sender: FDA-Public Use
  Company Number: JP-009507513-1902JPN000567J

PATIENT
  Age: 7 Decade
  Sex: Female

DRUGS (1)
  1. KEYTRUDA [Suspect]
     Active Substance: PEMBROLIZUMAB
     Indication: NON-SMALL CELL LUNG CANCER
     Dosage: 200 MILLIGRAM, Q3W
     Route: 041
     Dates: start: 20180524, end: 20190130

REACTIONS (6)
  - Altered state of consciousness [Fatal]
  - Blood corticotrophin increased [Unknown]
  - Pyrexia [Fatal]
  - Viral infection [Unknown]
  - General physical health deterioration [Fatal]
  - Encephalitis [Fatal]

NARRATIVE: CASE EVENT DATE: 201902
